FAERS Safety Report 4326429-8 (Version None)
Quarter: 2004Q1

REPORT INFORMATION
  Report Type: 
  Country: None (occurrence: None)
  Receive Date: 20040323
  Receipt Date: 20031222
  Transmission Date: 20041129
  Serious: Yes (Hospitalization)
  Sender: FDA-Public Use
  Company Number: M03-341-196

PATIENT
  Age: 68 Year
  Sex: Male
  Weight: 77 kg

DRUGS (1)
  1. VELCADE [Suspect]
     Indication: MULTIPLE MYELOMA
     Dosage: 2.4MG:INTRAVENOUS BOLUS
     Route: 040

REACTIONS (2)
  - BACTERAEMIA [None]
  - PNEUMONIA STREPTOCOCCAL [None]
